FAERS Safety Report 8618556 (Version 2)
Quarter: 2014Q1

REPORT INFORMATION
  Report Type: Spontaneous
  Country: US (occurrence: None)
  Receive Date: 20120323
  Receipt Date: 20130305
  Transmission Date: 20141002
  Serious: Yes (Hospitalization)
  Sender: FDA-Public Use
  Company Number: 163-21880-11092324

PATIENT
  Age: 80 Year
  Sex: Male

DRUGS (7)
  1. LENALIDOMIDE [Suspect]
     Indication: PLASMA CELL MYELOMA
     Dosage: 10 MG, PO?5MG DAILY X 21 DAYS
     Route: 048
     Dates: start: 20110815
  2. WARFARIN [Concomitant]
  3. NAPROXEN [Concomitant]
  4. ASA (ACETYLSALICYLIC ACID) [Concomitant]
  5. SIMVASTATIN [Concomitant]
  6. METOPROLOL [Concomitant]
  7. PREDNISONE [Concomitant]

REACTIONS (2)
  - Dehydration [None]
  - Anaemia [None]
